FAERS Safety Report 9891802 (Version 1)
Quarter: 2014Q1

REPORT INFORMATION
  Report Type: Spontaneous
  Country: CO (occurrence: CO)
  Receive Date: 20140212
  Receipt Date: 20140212
  Transmission Date: 20141002
  Serious: Yes (Other)
  Sender: FDA-Public Use
  Company Number: CO-PFIZER INC-2014038696

PATIENT
  Age: 59 Year
  Sex: Female

DRUGS (1)
  1. PRISTIQ [Suspect]
     Indication: PANIC DISORDER
     Dosage: 50 MG, 1X/DAY
     Route: 048
     Dates: start: 2012

REACTIONS (4)
  - Cholelithiasis [Recovering/Resolving]
  - Oropharyngeal discomfort [Recovering/Resolving]
  - Speech disorder [Recovering/Resolving]
  - Off label use [Unknown]
